FAERS Safety Report 8835899 (Version 1)
Quarter: 2012Q4

REPORT INFORMATION
  Report Type: 
  Country: US (occurrence: US)
  Receive Date: 20121011
  Receipt Date: 20121011
  Transmission Date: 20130627
  Serious: No
  Sender: FDA-Public Use
  Company Number: US-PFIZER INC-2012249491

PATIENT
  Sex: Female

DRUGS (5)
  1. TIKOSYN [Suspect]
     Indication: ATRIAL FIBRILLATION
     Dosage: 250 ug, 2x/day
     Route: 048
     Dates: start: 20120905
  2. HYDROCHLOROTHIAZIDE\LISINOPRIL [Suspect]
     Indication: HYPERTENSION
     Dosage: 20/12.5mg, 1x/day
     Dates: end: 20120905
  3. HYDROCHLOROTHIAZIDE [Interacting]
     Indication: OEDEMA PERIPHERAL
     Dosage: 12.5 mg, 1x/day
     Route: 048
     Dates: start: 201209, end: 2012
  4. HYDROCHLOROTHIAZIDE [Interacting]
     Indication: JOINT SWELLING
  5. LISINOPRIL [Concomitant]
     Indication: HYPERTENSION
     Dosage: UNK

REACTIONS (7)
  - Oedema peripheral [Not Recovered/Not Resolved]
  - Joint swelling [Not Recovered/Not Resolved]
  - Drug interaction [Unknown]
  - Arrhythmia [Unknown]
  - Drug ineffective [Unknown]
  - Palpitations [Unknown]
  - Cardiac disorder [Unknown]
